FAERS Safety Report 9332514 (Version 2)
Quarter: 2013Q2

REPORT INFORMATION
  Report Type: Spontaneous
  Country: JP (occurrence: None)
  Receive Date: 20130603
  Receipt Date: 20130603
  Transmission Date: 20140414
  Serious: Yes (Disabling, Other)
  Sender: FDA-Public Use
  Company Number: 2013-2267

PATIENT
  Age: 3 Year
  Sex: Female

DRUGS (2)
  1. RECOMBINANT HUMAN IGF-I (INCRELEX 10MG/ML) (MECASERMIN) (MECASERMIN) [Suspect]
     Indication: AUTOSOMAL CHROMOSOME ANOMALY
     Route: 058
     Dates: start: 1988, end: 1999
  2. RECOMBINANT HUMAN IGF-I (INCRELEX 10MG/ML) (MECASERMIN) (MECASERMIN) [Suspect]
     Indication: OFF LABEL USE
     Route: 058
     Dates: start: 1988, end: 1999

REACTIONS (11)
  - Endometrial adenocarcinoma [None]
  - Polycystic ovaries [None]
  - Goitre [None]
  - Mastitis [None]
  - Adenoma benign [None]
  - Diabetic ketoacidosis [None]
  - Gastroenteritis [None]
  - Blindness [None]
  - Glaucoma [None]
  - Retinal neovascularisation [None]
  - Tonsillectomy [None]
